FAERS Safety Report 6330709-4 (Version None)
Quarter: 2009Q3

REPORT INFORMATION
  Report Type: 
  Country: None (occurrence: None)
  Receive Date: 20090827
  Receipt Date: 20090825
  Transmission Date: 20100115
  Serious: Yes (Life-Threatening, Other)
  Sender: FDA-Public Use
  Company Number: IT-WYE-G04287809

PATIENT
  Sex: Male

DRUGS (5)
  1. TAZOCIN [Suspect]
     Indication: HYPERPYREXIA
     Dosage: 18G
     Dates: start: 20090626, end: 20090711
  2. PARACETAMOL [Concomitant]
     Dosage: NOT REPORTED
  3. DALACIN C PHOSPHATE [Concomitant]
     Dosage: 600MG / 4ML
  4. LIMPIDEX [Concomitant]
     Dosage: 30 MG
     Route: 048
  5. FRAGMIN [Concomitant]
     Dosage: NOT REPORTED
     Route: 058
     Dates: start: 20090626, end: 20090711

REACTIONS (2)
  - HEPATIC FAILURE [None]
  - SEPTIC SHOCK [None]
